FAERS Safety Report 7395337-0 (Version None)
Quarter: 2011Q2

REPORT INFORMATION
  Report Type: 
  Country: None (occurrence: None)
  Receive Date: 20110405
  Receipt Date: 20110330
  Transmission Date: 20111010
  Serious: Yes (Other)
  Sender: FDA-Public Use
  Company Number: IT-PFIZER INC-2011071423

PATIENT
  Age: 70 Year
  Sex: Female

DRUGS (2)
  1. XANAX [Suspect]
     Indication: DEPRESSION
     Dosage: 0.25 MG DAILY
     Route: 048
     Dates: start: 20101014, end: 20101018
  2. XANAX [Suspect]
     Indication: ANXIETY

REACTIONS (3)
  - HEMICEPHALALGIA [None]
  - TREMOR [None]
  - HYPERTENSIVE CRISIS [None]
